FAERS Safety Report 15326545 (Version 1)
Quarter: 2018Q3

REPORT INFORMATION
  Report Type: Spontaneous
  Country: FR (occurrence: FR)
  Receive Date: 20180828
  Receipt Date: 20180828
  Transmission Date: 20181010
  Serious: Yes (Other)
  Sender: FDA-Public Use
  Company Number: FR-009507513-1808FRA010699

PATIENT
  Age: 70 Year
  Sex: Female
  Weight: 60 kg

DRUGS (14)
  1. EMEND [Suspect]
     Active Substance: APREPITANT
     Dosage: UNK
     Route: 048
     Dates: start: 20180301, end: 20180303
  2. MEDROL [Suspect]
     Active Substance: METHYLPREDNISOLONE
     Indication: PROPHYLAXIS OF NAUSEA AND VOMITING
     Dosage: 64 MG, QD
     Route: 048
     Dates: start: 20180303, end: 20180305
  3. FLUOROURACIL. [Suspect]
     Active Substance: FLUOROURACIL
     Dosage: 1280 MG, QD
     Route: 042
     Dates: start: 20180301, end: 20180302
  4. EMEND [Suspect]
     Active Substance: APREPITANT
     Indication: PROPHYLAXIS OF NAUSEA AND VOMITING
     Dosage: 125 MG, QD
     Route: 048
     Dates: start: 20180301, end: 20180301
  5. ONDANSETRON [Suspect]
     Active Substance: ONDANSETRON
     Indication: PROPHYLAXIS OF NAUSEA AND VOMITING
     Dosage: 8 MG, QD
     Route: 042
     Dates: start: 20180301, end: 20180302
  6. DACARBAZINE. [Suspect]
     Active Substance: DACARBAZINE
     Indication: PANCREATIC NEOPLASM
     Dosage: 640 MG, QD
     Route: 042
     Dates: start: 20180301, end: 20180302
  7. COVERSYL (PERINDOPRIL ARGININE) [Concomitant]
     Active Substance: PERINDOPRIL ARGININE
     Indication: HYPERTENSION
     Dosage: 2.5 MG, QD
     Route: 048
  8. EMEND [Suspect]
     Active Substance: APREPITANT
     Indication: PROPHYLAXIS OF NAUSEA AND VOMITING
     Dosage: 80 MG, QD
     Route: 048
     Dates: start: 20180302, end: 20180303
  9. EMEND [Suspect]
     Active Substance: APREPITANT
     Dosage: UNK
     Route: 048
     Dates: start: 20180301, end: 20180303
  10. FLUOROURACIL. [Suspect]
     Active Substance: FLUOROURACIL
     Indication: PANCREATIC NEOPLASM
     Dosage: 1900 MG, QD
     Route: 042
     Dates: start: 20180301, end: 20180301
  11. LEVOLEUCOVORIN CALCIUM. [Suspect]
     Active Substance: LEVOLEUCOVORIN CALCIUM
     Indication: BLOOD FOLATE DECREASED
     Dosage: 318 MG, QD
     Route: 042
     Dates: start: 20180301, end: 20180302
  12. METHYLPREDNISOLONE. [Suspect]
     Active Substance: METHYLPREDNISOLONE
     Indication: PROPHYLAXIS OF NAUSEA AND VOMITING
     Dosage: 60 MG, QD
     Route: 042
     Dates: start: 20180301, end: 20180302
  13. EUROBIOL [Concomitant]
     Indication: PANCREATECTOMY
     Dosage: 120000 IU, QD
     Route: 048
     Dates: start: 201710
  14. ORACILLINE (PENICILLIN V BENZATHINE) [Concomitant]
     Active Substance: PENICILLIN V BENZATHINE
     Indication: SPLENECTOMY
     Dosage: 2000000 IU, QD
     Route: 048
     Dates: start: 201710

REACTIONS (3)
  - Photophobia [Recovered/Resolved]
  - Vision blurred [Recovered/Resolved]
  - Eye pain [Recovered/Resolved]

NARRATIVE: CASE EVENT DATE: 201803
